FAERS Safety Report 17984792 (Version 2)
Quarter: 2020Q3

REPORT INFORMATION
  Report Type: Spontaneous
  Country: US (occurrence: US)
  Receive Date: 20200706
  Receipt Date: 20200715
  Transmission Date: 20201103
  Serious: Yes (Hospitalization)
  Sender: FDA-Public Use
  Company Number: US-CELGENEUS-USA-20200700647

PATIENT
  Sex: Female

DRUGS (2)
  1. REVLIMID [Suspect]
     Active Substance: LENALIDOMIDE
     Indication: PLASMA CELL MYELOMA
     Dosage: 15 MILLIGRAM
     Route: 048
     Dates: start: 201908
  2. REVLIMID [Suspect]
     Active Substance: LENALIDOMIDE
     Indication: BLOOD DISORDER
     Dosage: 5 MILLIGRAM
     Route: 048
     Dates: start: 20200129, end: 20200624

REACTIONS (1)
  - Peritonitis [Unknown]
